FAERS Safety Report 7462815-5 (Version None)
Quarter: 2011Q1

REPORT INFORMATION
  Report Type: 
  Country: None (occurrence: None)
  Receive Date: 20110302
  Receipt Date: 20101202
  Transmission Date: 20110831
  Serious: Yes (Hospitalization)
  Sender: FDA-Public Use
  Company Number: 163-21880-10111702

PATIENT
  Age: 82 Year
  Sex: Male

DRUGS (2)
  1. COUMADIN [Suspect]
     Indication: PRODUCT USED FOR UNKNOWN INDICATION
  2. REVLIMID [Suspect]
     Indication: MULTIPLE MYELOMA
     Dosage: 25 MG, DAILY FOR 21 DAYS/28, PO
     Route: 048
     Dates: start: 20100601, end: 20100101

REACTIONS (3)
  - OEDEMA PERIPHERAL [None]
  - TOXICITY TO VARIOUS AGENTS [None]
  - PLATELET COUNT DECREASED [None]
